FAERS Safety Report 7642966-2 (Version None)
Quarter: 2011Q3

REPORT INFORMATION
  Report Type: 
  Country: None (occurrence: None)
  Receive Date: 20110728
  Receipt Date: 20110725
  Transmission Date: 20111222
  Serious: Yes (Hospitalization, Other)
  Sender: FDA-Public Use
  Company Number: US-ABBOTT-11P-163-0720584-00

PATIENT
  Age: 78 Year
  Sex: Female
  Weight: 78.088 kg

DRUGS (5)
  1. UNSPECIFIED MEDICATION [Concomitant]
     Indication: HYPERTENSION
  2. ASPIRIN [Concomitant]
     Indication: PRODUCT USED FOR UNKNOWN INDICATION
  3. LIPITOR [Suspect]
     Indication: BLOOD CHOLESTEROL INCREASED
     Route: 048
  4. UNSPECIFIED MEDICATION [Concomitant]
     Indication: IRRITABLE BOWEL SYNDROME
  5. TRICOR [Suspect]
     Indication: PRODUCT USED FOR UNKNOWN INDICATION

REACTIONS (6)
  - CHOKING [None]
  - DIARRHOEA [None]
  - HYPERTENSION [None]
  - NAUSEA [None]
  - CEREBROVASCULAR ACCIDENT [None]
  - FEELING ABNORMAL [None]
